FAERS Safety Report 17971391 (Version 10)
Quarter: 2022Q1

REPORT INFORMATION
  Report Type: Spontaneous
  Country: ES (occurrence: ES)
  Receive Date: 20200702
  Receipt Date: 20220318
  Transmission Date: 20220423
  Serious: Yes (Life-Threatening, Hospitalization, Other)
  Sender: FDA-Public Use
  Company Number: ES-KRKA-ES2020K10024LIT

PATIENT
  Age: 66 Year
  Sex: Male

DRUGS (10)
  1. DULOXETINE [Interacting]
     Active Substance: DULOXETINE
     Indication: Bipolar disorder
     Dosage: 120 MILLIGRAM, ONCE A DAY
     Route: 048
  2. DULOXETINE [Interacting]
     Active Substance: DULOXETINE
     Indication: Cervical spinal stenosis
  3. HALOPERIDOL [Interacting]
     Active Substance: HALOPERIDOL
     Indication: Delirium
     Dosage: 1 MILLIGRAM, TWO TIMES A DAY
     Route: 048
  4. HALOPERIDOL [Interacting]
     Active Substance: HALOPERIDOL
     Indication: Bipolar disorder
     Dosage: 1 MICROGRAM, TWO TIMES A DAY
     Route: 065
  5. HYDROXYCHLOROQUINE [Interacting]
     Active Substance: HYDROXYCHLOROQUINE
     Indication: COVID-19 treatment
     Dosage: 200 MILLIGRAM, TWO TIMES A DAY
     Route: 048
  6. HYDROXYCHLOROQUINE [Interacting]
     Active Substance: HYDROXYCHLOROQUINE
     Indication: COVID-19
     Dosage: 200 MILLIGRAM, ONCE A DAY
     Route: 065
  7. LITHIUM [Interacting]
     Active Substance: LITHIUM
     Indication: Bipolar disorder
     Dosage: 800 MILLIGRAM, ONCE A DAY
     Route: 048
  8. LOPINAVIR\RITONAVIR [Interacting]
     Active Substance: LOPINAVIR\RITONAVIR
     Indication: COVID-19 treatment
     Dosage: 1 DOSAGE FORM (400 MG/100 MG TWICE DAILY )
     Route: 048
  9. LOPINAVIR\RITONAVIR [Interacting]
     Active Substance: LOPINAVIR\RITONAVIR
     Indication: COVID-19
  10. HALOPERIDOL [Concomitant]
     Active Substance: HALOPERIDOL
     Indication: Product used for unknown indication
     Dosage: 2 MILLIGRAM,
     Route: 065

REACTIONS (17)
  - Serotonin syndrome [Recovered/Resolved]
  - Tachycardia [Recovered/Resolved]
  - Blood pressure increased [Recovered/Resolved]
  - Hyperhidrosis [Recovered/Resolved]
  - Hyperreflexia [Recovered/Resolved]
  - Myoclonus [Recovered/Resolved]
  - Encephalopathy [Recovered/Resolved]
  - Urinary retention [Recovered/Resolved]
  - Depressed level of consciousness [Recovering/Resolving]
  - Blood creatinine increased [Recovered/Resolved]
  - Blood creatine phosphokinase increased [Recovered/Resolved]
  - Speech sound disorder [Recovering/Resolving]
  - Clonus [Recovered/Resolved]
  - Delirium [Recovered/Resolved]
  - Off label use [Unknown]
  - Drug interaction [Recovered/Resolved]
  - Hyperthermia [Recovering/Resolving]
